FAERS Safety Report 10041194 (Version 1)
Quarter: 2014Q1

REPORT INFORMATION
  Report Type: Spontaneous
  Country: US (occurrence: None)
  Receive Date: 20140326
  Receipt Date: 20140326
  Transmission Date: 20141002
  Serious: Yes (Life-Threatening, Hospitalization)
  Sender: FDA-Public Use
  Company Number: None

PATIENT
  Age: 64 Year
  Sex: Male
  Weight: 71.2 kg

DRUGS (2)
  1. WARFARIN [Suspect]
     Indication: PERIPHERAL VASCULAR DISORDER
     Route: 048
  2. CLOPIDOGREL [Suspect]
     Route: 048

REACTIONS (5)
  - Headache [None]
  - Mental status changes [None]
  - Vomiting [None]
  - Brain midline shift [None]
  - Cerebral haemorrhage [None]
